FAERS Safety Report 16943783 (Version 2)
Quarter: 2019Q4

REPORT INFORMATION
  Report Type: Report from Study
  Country: US (occurrence: US)
  Receive Date: 20191022
  Receipt Date: 20191126
  Transmission Date: 20200122
  Serious: Yes (Other)
  Sender: FDA-Public Use
  Company Number: US-AUROBINDO-AUR-APL-2019-067678

PATIENT

DRUGS (5)
  1. MELPHALAN INJECTION [Suspect]
     Active Substance: MELPHALAN
     Indication: CONGENITAL RETINOBLASTOMA
     Dosage: 0.4 MILLIGRAM/KILOGRAM (4.5 MG DOSE)
     Route: 013
  2. TOPOTECAN [Suspect]
     Active Substance: TOPOTECAN HYDROCHLORIDE
     Dosage: INCREASED DOSE
     Route: 013
  3. CARBOPLATIN. [Suspect]
     Active Substance: CARBOPLATIN
     Indication: CONGENITAL RETINOBLASTOMA
     Dosage: 50 MILLIGRAM
     Route: 013
  4. TOPOTECAN [Suspect]
     Active Substance: TOPOTECAN HYDROCHLORIDE
     Dosage: 2 MILLIGRAM, REDUCED DOSE
     Route: 013
  5. TOPOTECAN [Suspect]
     Active Substance: TOPOTECAN HYDROCHLORIDE
     Indication: CONGENITAL RETINOBLASTOMA
     Dosage: 2 MILLIGRAM
     Route: 013

REACTIONS (5)
  - Drug ineffective for unapproved indication [Unknown]
  - Retinal haemorrhage [Recovering/Resolving]
  - Off label use [Unknown]
  - Product use issue [Unknown]
  - Retinopathy [Recovering/Resolving]
